FAERS Safety Report 25461837 (Version 4)
Quarter: 2025Q4

REPORT INFORMATION
  Report Type: Report from Study
  Country: JP (occurrence: JP)
  Receive Date: 20250620
  Receipt Date: 20251224
  Transmission Date: 20260118
  Serious: Yes (Death, Hospitalization, Other)
  Sender: GILEAD
  Company Number: JP-GILEAD-2023-0645995

PATIENT
  Age: 6 Decade
  Sex: Male
  Weight: 45 kg

DRUGS (51)
  1. BICTEGRAVIR\EMTRICITABINE\TENOFOVIR ALAFENAMIDE [Suspect]
     Active Substance: BICTEGRAVIR\EMTRICITABINE\TENOFOVIR ALAFENAMIDE
     Indication: HIV infection
     Dosage: 1 DOSAGE FORM, QD
     Route: 048
     Dates: start: 20220711, end: 20231017
  2. BICTEGRAVIR\EMTRICITABINE\TENOFOVIR ALAFENAMIDE [Suspect]
     Active Substance: BICTEGRAVIR\EMTRICITABINE\TENOFOVIR ALAFENAMIDE
     Dosage: 1 DOSAGE FORM, QD
     Route: 048
     Dates: start: 20231023, end: 20231031
  3. EMTRICITABINE\TENOFOVIR [Suspect]
     Active Substance: EMTRICITABINE\TENOFOVIR
     Indication: HIV infection
     Dosage: 1 DOSAGE FORM, QD
     Route: 048
     Dates: start: 20220620, end: 20220710
  4. EMTRICITABINE\TENOFOVIR [Suspect]
     Active Substance: EMTRICITABINE\TENOFOVIR
     Dosage: 1 DOSAGE FORM, QD
     Route: 048
     Dates: start: 20231101, end: 20240821
  5. YESCARTA [Suspect]
     Active Substance: AXICABTAGENE CILOLEUCEL
     Indication: Diffuse large B-cell lymphoma
     Dosage: UNK
     Route: 041
     Dates: start: 20240528, end: 20240528
  6. ISENTRESS [Concomitant]
     Active Substance: RALTEGRAVIR POTASSIUM
     Indication: HIV infection
     Dosage: 2 DOSAGE FORM
     Dates: start: 20220620, end: 20220710
  7. ISENTRESS [Concomitant]
     Active Substance: RALTEGRAVIR POTASSIUM
     Dosage: 2 DOSAGE FORM, QD
     Dates: start: 20231101, end: 20240821
  8. ATOVAQUONE [Concomitant]
     Active Substance: ATOVAQUONE
     Indication: Prophylaxis
     Dosage: UNK
     Dates: start: 20220615, end: 20230324
  9. ATOVAQUONE [Concomitant]
     Active Substance: ATOVAQUONE
     Dosage: UNK
     Dates: start: 20240409, end: 20240426
  10. VALACYCLOVIR HYDROCHLORIDE [Concomitant]
     Active Substance: VALACYCLOVIR HYDROCHLORIDE
     Dosage: UNK
     Dates: start: 20220617, end: 20220627
  11. BESELNA [Concomitant]
     Dosage: UNK
     Dates: start: 20230222, end: 20230614
  12. HUMAN RED BLOOD CELL [Concomitant]
     Active Substance: HUMAN RED BLOOD CELL
     Dosage: UNK
     Dates: start: 20231017, end: 20231017
  13. OMEPRAZOLE [Concomitant]
     Active Substance: OMEPRAZOLE
     Dosage: 20 MG
     Dates: start: 20231017, end: 20231024
  14. SODIUM CHLORIDE [Concomitant]
     Active Substance: SODIUM CHLORIDE
     Dosage: 50 ML
     Dates: start: 20231017, end: 20231024
  15. SODIUM CHLORIDE [Concomitant]
     Active Substance: SODIUM CHLORIDE
     Dosage: UNK
     Dates: start: 20231017, end: 20231024
  16. SODIUM CHLORIDE [Concomitant]
     Active Substance: SODIUM CHLORIDE
     Dosage: 50 ML
     Dates: start: 20231116, end: 20231116
  17. SODIUM CHLORIDE [Concomitant]
     Active Substance: SODIUM CHLORIDE
     Dosage: 100 ML
     Dates: start: 20240601, end: 20240609
  18. SODIUM CHLORIDE [Concomitant]
     Active Substance: SODIUM CHLORIDE
     Dosage: 50 ML
     Dates: start: 20231116, end: 20240229
  19. SODIUM CHLORIDE [Concomitant]
     Active Substance: SODIUM CHLORIDE
     Dosage: 100 ML
     Dates: start: 20231116, end: 20240229
  20. SODIUM CHLORIDE [Concomitant]
     Active Substance: SODIUM CHLORIDE
     Dosage: 100 ML
     Dates: start: 20231116, end: 20240321
  21. SODIUM CHLORIDE [Concomitant]
     Active Substance: SODIUM CHLORIDE
     Dosage: 57.9 ML
     Dates: start: 20231116, end: 20240321
  22. SODIUM CHLORIDE [Concomitant]
     Active Substance: SODIUM CHLORIDE
     Dosage: 250 ML
     Dates: start: 20231116, end: 20240331
  23. SODIUM CHLORIDE [Concomitant]
     Active Substance: SODIUM CHLORIDE
     Dosage: 50 ML
     Dates: start: 20231121, end: 20240321
  24. SODIUM CHLORIDE [Concomitant]
     Active Substance: SODIUM CHLORIDE
     Dosage: 250 ML
     Dates: start: 20231121, end: 20241123
  25. SODIUM CHLORIDE [Concomitant]
     Active Substance: SODIUM CHLORIDE
     Dosage: 20 ML
     Dates: start: 20231121, end: 20241123
  26. SODIUM CHLORIDE [Concomitant]
     Active Substance: SODIUM CHLORIDE
     Dosage: 250 ML
     Dates: start: 20231208, end: 20240321
  27. SODIUM CHLORIDE [Concomitant]
     Active Substance: SODIUM CHLORIDE
     Dosage: 57.7 ML
     Dates: start: 20231208, end: 20240229
  28. SODIUM CHLORIDE [Concomitant]
     Active Substance: SODIUM CHLORIDE
     Dosage: 250 ML
     Dates: start: 20231208, end: 20240229
  29. SODIUM CHLORIDE [Concomitant]
     Active Substance: SODIUM CHLORIDE
     Dosage: 250 ML
     Dates: start: 20240422, end: 20240422
  30. SODIUM CHLORIDE [Concomitant]
     Active Substance: SODIUM CHLORIDE
     Dosage: 100 ML
     Dates: start: 20240409, end: 20240617
  31. SODIUM CHLORIDE [Concomitant]
     Active Substance: SODIUM CHLORIDE
     Dosage: 500 ML
     Dates: start: 20240418, end: 20240418
  32. SODIUM CHLORIDE [Concomitant]
     Active Substance: SODIUM CHLORIDE
     Dosage: 100 ML
     Dates: start: 20240419, end: 20240419
  33. SODIUM CHLORIDE [Concomitant]
     Active Substance: SODIUM CHLORIDE
     Dosage: 100 ML
     Dates: start: 20240508, end: 20240510
  34. SODIUM CHLORIDE [Concomitant]
     Active Substance: SODIUM CHLORIDE
     Dosage: 50 ML
     Dates: start: 20240523, end: 20240525
  35. SODIUM CHLORIDE [Concomitant]
     Active Substance: SODIUM CHLORIDE
     Dosage: 100 ML
     Dates: start: 20240523, end: 20240525
  36. SODIUM CHLORIDE [Concomitant]
     Active Substance: SODIUM CHLORIDE
     Dosage: 287 ML
     Dates: start: 20240523, end: 20240525
  37. SODIUM CHLORIDE [Concomitant]
     Active Substance: SODIUM CHLORIDE
     Dosage: 100 ML
     Dates: start: 20240529, end: 20240602
  38. SODIUM CHLORIDE [Concomitant]
     Active Substance: SODIUM CHLORIDE
     Dosage: 100 ML
     Dates: start: 20240601, end: 20240609
  39. VONOPRAZAN FUMARATE [Concomitant]
     Active Substance: VONOPRAZAN FUMARATE
     Dosage: UNK
     Dates: start: 20231025
  40. FLUCONAZOLE [Concomitant]
     Active Substance: FLUCONAZOLE
     Indication: Prophylaxis
     Dosage: UNK
     Dates: start: 20231115
  41. ZOVIRAX [Concomitant]
     Active Substance: ACYCLOVIR
     Indication: Prophylaxis
     Dosage: UNK
     Dates: start: 20231115
  42. MAGNESIUM OXIDE [Concomitant]
     Active Substance: MAGNESIUM OXIDE
     Indication: Prophylaxis
     Dosage: UNK
     Dates: start: 20231115, end: 2024
  43. SENNOSIDES A AND B [Concomitant]
     Active Substance: SENNOSIDES A AND B
     Indication: Prophylaxis
     Dosage: UNK
     Dates: start: 20231115
  44. ZOLPIDEM TARTRATE [Concomitant]
     Active Substance: ZOLPIDEM TARTRATE
     Indication: Prophylaxis
     Dosage: UNK
     Dates: start: 20231115
  45. BENZETHONIUM CHLORIDE [Concomitant]
     Active Substance: BENZETHONIUM CHLORIDE
     Indication: Prophylaxis
     Dosage: UNK
     Dates: start: 20240517
  46. METOCLOPRAMIDE [Concomitant]
     Active Substance: METOCLOPRAMIDE
     Indication: Prophylaxis
     Dosage: UNK
     Dates: start: 20240526
  47. METOCLOPRAMIDE [Concomitant]
     Active Substance: METOCLOPRAMIDE
     Indication: Diffuse large B-cell lymphoma
  48. ATARAX P [HYDROXYZINE HYDROCHLORIDE] [Concomitant]
     Indication: Insomnia
     Dosage: UNK
     Dates: start: 20240529, end: 20240529
  49. ATARAX P [HYDROXYZINE HYDROCHLORIDE] [Concomitant]
     Indication: Prophylaxis
  50. ACETAMINOPHEN [Concomitant]
     Active Substance: ACETAMINOPHEN
     Indication: Prophylaxis
     Dosage: UNK
     Dates: start: 20231115, end: 202406
  51. DAYVIGO [Concomitant]
     Active Substance: LEMBOREXANT
     Indication: Prophylaxis
     Dosage: UNK
     Dates: start: 20240614

REACTIONS (9)
  - Death [Fatal]
  - Anaemia [Not Recovered/Not Resolved]
  - Diffuse large B-cell lymphoma [Not Recovered/Not Resolved]
  - Diffuse large B-cell lymphoma [Unknown]
  - Faeces soft [Not Recovered/Not Resolved]
  - Cytokine release syndrome [Not Recovered/Not Resolved]
  - Syphilis [Recovering/Resolving]
  - Hypertension [Recovering/Resolving]
  - Dyslipidaemia [Recovering/Resolving]

NARRATIVE: CASE EVENT DATE: 20220727
